FAERS Safety Report 10094314 (Version 3)
Quarter: 2014Q2

REPORT INFORMATION
  Report Type: Report from Study
  Country: CA (occurrence: CA)
  Receive Date: 20140422
  Receipt Date: 20140423
  Transmission Date: 20141212
  Serious: Yes (Other)
  Sender: FDA-Public Use
  Company Number: CA-ROCHE-1142048

PATIENT
  Age: 50 Year
  Sex: Female

DRUGS (7)
  1. ZELBORAF [Suspect]
     Indication: METASTATIC MALIGNANT MELANOMA
     Route: 048
     Dates: start: 20120912, end: 2013
  2. ZELBORAF [Suspect]
     Route: 048
     Dates: start: 2012
  3. ZELBORAF [Suspect]
     Route: 048
     Dates: start: 201210
  4. ZELBORAF [Suspect]
     Route: 048
     Dates: start: 201211, end: 20121113
  5. ZELBORAF [Suspect]
     Route: 048
     Dates: start: 2012
  6. ZELBORAF [Suspect]
     Route: 048
     Dates: start: 201301
  7. ZELBORAF [Suspect]
     Route: 048
     Dates: start: 201302

REACTIONS (21)
  - Disease progression [Not Recovered/Not Resolved]
  - Urticaria [Recovering/Resolving]
  - Pyrexia [Recovered/Resolved]
  - Arthralgia [Recovering/Resolving]
  - Rash [Recovering/Resolving]
  - Middle insomnia [Unknown]
  - Psychomotor hyperactivity [Unknown]
  - Fatigue [Unknown]
  - Heart rate increased [Unknown]
  - Erythema [Unknown]
  - Mass [Unknown]
  - Pain in extremity [Not Recovered/Not Resolved]
  - Blister [Recovering/Resolving]
  - Skin exfoliation [Recovering/Resolving]
  - Ocular discomfort [Not Recovered/Not Resolved]
  - Visual acuity reduced [Not Recovered/Not Resolved]
  - Peripheral swelling [Recovering/Resolving]
  - Hyperkeratosis [Recovered/Resolved]
  - Pain in extremity [Recovered/Resolved]
  - Gait disturbance [Recovered/Resolved]
  - Alopecia [Not Recovered/Not Resolved]
